FAERS Safety Report 4466441-1 (Version None)
Quarter: 2004Q4

REPORT INFORMATION
  Report Type: 
  Country: None (occurrence: None)
  Receive Date: 20041005
  Receipt Date: 20040901
  Transmission Date: 20050328
  Serious: No
  Sender: FDA-Public Use
  Company Number: US-MERCK-0409USA00141

PATIENT

DRUGS (1)
  1. ZETIA [Suspect]
     Route: 048
     Dates: start: 20040101

REACTIONS (3)
  - GOITRE [None]
  - HYPERTHYROIDISM [None]
  - LOCAL SWELLING [None]
